FAERS Safety Report 7309246-6 (Version None)
Quarter: 2011Q1

REPORT INFORMATION
  Report Type: 
  Country: None (occurrence: None)
  Receive Date: 20110223
  Receipt Date: 20110217
  Transmission Date: 20110831
  Serious: Yes (Other)
  Sender: FDA-Public Use
  Company Number: NL-ABBOTT-10P-114-0663370-00

PATIENT
  Sex: Male

DRUGS (11)
  1. HUMIRA [Suspect]
     Indication: PSORIASIS
     Route: 058
     Dates: start: 20100211, end: 20100601
  2. CODIOVAN [Concomitant]
     Indication: HYPERTENSION
     Dosage: 160/12.5 MG
     Dates: start: 20100706
  3. CALCICHEW [Concomitant]
     Indication: OSTEOPOROSIS
     Dates: start: 20100701
  4. HYDROCHLOROTHIAZIDE [Concomitant]
     Indication: HYPERTENSION
  5. HYDROCORTISON [Concomitant]
     Indication: PRODUCT USED FOR UNKNOWN INDICATION
     Dosage: ONCE A DAY 2 TABLETS AND TWICE A DAY 1 TABLET
     Dates: end: 20100719
  6. ADALAT [Concomitant]
     Indication: HYPERTENSION
     Dates: start: 20101001
  7. DERMOVATE [Concomitant]
     Indication: PSORIASIS
     Route: 061
     Dates: start: 20100812
  8. SLOW-K [Concomitant]
     Indication: HYPOKALAEMIA
     Dates: start: 20100706
  9. THYRAX [Concomitant]
     Indication: THYROIDITIS
     Dates: start: 20101101
  10. HUMIRA [Concomitant]
     Indication: PSORIASIS
     Route: 058
     Dates: start: 20080501
  11. METFORMINE [Concomitant]
     Indication: TYPE 2 DIABETES MELLITUS
     Dates: end: 20090621

REACTIONS (1)
  - THYROIDITIS FIBROUS CHRONIC [None]
